FAERS Safety Report 6056953-1 (Version None)
Quarter: 2009Q1

REPORT INFORMATION
  Report Type: 
  Country: None (occurrence: None)
  Receive Date: 20090123
  Receipt Date: 20090123
  Transmission Date: 20090719
  Serious: Yes (Hospitalization)
  Sender: FDA-Public Use
  Company Number: None

PATIENT
  Age: 36 Year
  Sex: Female

DRUGS (1)
  1. CITALOPRAM HYDROBROMIDE [Suspect]
     Dosage: 20 MG/DAY, ORAL; OVERDOSE OF 50 TABLETS
     Route: 048

REACTIONS (10)
  - ALCOHOL USE [None]
  - ASTHENIA [None]
  - HYPOAESTHESIA [None]
  - HYPOTENSION [None]
  - LOSS OF CONSCIOUSNESS [None]
  - OVERDOSE [None]
  - PALPITATIONS [None]
  - SUICIDE ATTEMPT [None]
  - TORSADE DE POINTES [None]
  - TREMOR [None]
